FAERS Safety Report 4664145-3 (Version None)
Quarter: 2005Q2

REPORT INFORMATION
  Report Type: 
  Country: None (occurrence: None)
  Receive Date: 20050516
  Receipt Date: 20050516
  Transmission Date: 20051028
  Serious: Yes (Hospitalization)
  Sender: FDA-Public Use
  Company Number: None

PATIENT
  Sex: Female
  Weight: 58.9676 kg

DRUGS (1)
  1. BIAXIN XL [Suspect]
     Indication: INFECTION

REACTIONS (5)
  - ANGINA PECTORIS [None]
  - CHEST PAIN [None]
  - DIZZINESS [None]
  - LUNG DISORDER [None]
  - MALAISE [None]
